FAERS Safety Report 9010784 (Version 1)
Quarter: 2013Q1

REPORT INFORMATION
  Report Type: Spontaneous
  Country: JP (occurrence: JP)
  Receive Date: 20130109
  Receipt Date: 20130109
  Transmission Date: 20140127
  Serious: Yes (Hospitalization)
  Sender: FDA-Public Use
  Company Number: JP-ASTELLAS-2013US000232

PATIENT
  Age: 65 Year
  Sex: Female

DRUGS (3)
  1. TARCEVA [Suspect]
     Indication: LUNG ADENOCARCINOMA
     Dosage: 150 MG, UID/QD
     Route: 048
     Dates: end: 201211
  2. TARCEVA [Suspect]
     Dosage: 100 MG, UID/QD
     Route: 048
     Dates: end: 201211
  3. TARCEVA [Suspect]
     Dosage: 100 MG, QOD
     Route: 048
     Dates: start: 201211

REACTIONS (1)
  - White blood cell count decreased [Recovered/Resolved]
